FAERS Safety Report 4513761-8 (Version None)
Quarter: 2004Q4

REPORT INFORMATION
  Report Type: 
  Country: None (occurrence: None)
  Receive Date: 20041124
  Receipt Date: 20041115
  Transmission Date: 20050328
  Serious: Yes (Other)
  Sender: FDA-Public Use
  Company Number: 028-20785-04110413

PATIENT
  Age: 14 Year
  Sex: Female

DRUGS (12)
  1. THALOMID [Suspect]
     Indication: ANGIOSARCOMA
     Dosage: 100 MG TO 300 MG, BID, PER ORAL
     Route: 048
     Dates: start: 20040501, end: 20040614
  2. VINBLASTINE SULFATE [Suspect]
     Indication: ANGIOSARCOMA
  3. CISPLATIN [Suspect]
     Indication: ANGIOSARCOMA
  4. CELECOXIB (CELECOXIB) [Suspect]
     Indication: ANGIOSARCOMA
  5. DOXORUBICIN HCL [Suspect]
     Indication: ANGIOSARCOMA
  6. CELEXA [Concomitant]
  7. SEPTRA [Concomitant]
  8. FENTANYL [Concomitant]
  9. PHYTONADIONE [Concomitant]
  10. COLACE (DOCUSATE SODIUM) [Concomitant]
  11. DOMPERIDONE (DOMPERIDONE) [Concomitant]
  12. PREVACID [Concomitant]

REACTIONS (1)
  - PETIT MAL EPILEPSY [None]
